FAERS Safety Report 8960296 (Version 2)
Quarter: 2013Q1

REPORT INFORMATION
  Report Type: Spontaneous
  Country: US (occurrence: US)
  Receive Date: 20121211
  Receipt Date: 20130117
  Transmission Date: 20140127
  Serious: Yes (Other)
  Sender: FDA-Public Use
  Company Number: US-TEVA-374776USA

PATIENT
  Age: 50 None
  Sex: Male
  Weight: 180.69 kg

DRUGS (7)
  1. TRISENOX [Suspect]
     Indication: ACUTE PROMYELOCYTIC LEUKAEMIA
  2. TRETINOIN [Concomitant]
     Dosage: 6 CAPSULES BID
     Route: 048
  3. NOVOLOG [Concomitant]
     Route: 058
  4. LANTUS [Concomitant]
     Route: 058
  5. DEXAMETHASONE [Concomitant]
     Route: 048
  6. ZOFRAN [Concomitant]
     Dosage: 24 MILLIGRAM DAILY;
     Route: 048
  7. ALOXI [Concomitant]

REACTIONS (5)
  - Electrocardiogram QT prolonged [Unknown]
  - Rash erythematous [Unknown]
  - Weight increased [Unknown]
  - Flushing [Unknown]
  - Fluid retention [Unknown]
